FAERS Safety Report 19135735 (Version 5)
Quarter: 2021Q4

REPORT INFORMATION
  Report Type: Spontaneous
  Country: US (occurrence: US)
  Receive Date: 20210414
  Receipt Date: 20211221
  Transmission Date: 20220303
  Serious: No
  Sender: FDA-Public Use
  Company Number: US-BIOGEN-2021BI00999430

PATIENT
  Sex: Male

DRUGS (4)
  1. TECFIDERA [Interacting]
     Active Substance: DIMETHYL FUMARATE
     Indication: Multiple sclerosis
     Route: 065
     Dates: start: 20131021
  2. TECFIDERA [Interacting]
     Active Substance: DIMETHYL FUMARATE
     Route: 048
     Dates: start: 20151008
  3. MODERNA COVID-19 VACCINE [Interacting]
     Active Substance: ELASOMERAN
     Indication: COVID-19 prophylaxis
     Route: 065
  4. LISINOPRIL [Concomitant]
     Active Substance: LISINOPRIL
     Route: 065

REACTIONS (5)
  - Inappropriate schedule of product administration [Unknown]
  - Pain [Unknown]
  - Drug interaction [Unknown]
  - Vaccination complication [Unknown]
  - Flushing [Unknown]
